FAERS Safety Report 24077124 (Version 3)
Quarter: 2024Q4

REPORT INFORMATION
  Report Type: Report from Study
  Country: CA (occurrence: CA)
  Receive Date: 20240711
  Receipt Date: 20241106
  Transmission Date: 20250115
  Serious: Yes (Other)
  Sender: BIOGEN
  Company Number: CA-BIOGEN-2024BI01272621

PATIENT
  Sex: Female

DRUGS (1)
  1. SPINRAZA [Suspect]
     Active Substance: NUSINERSEN
     Indication: Spinal muscular atrophy
     Dosage: 0 DAYS, 14DAYS,14DAYS,? 30 DAYS, EVERY 4 MONTHS
     Route: 050
     Dates: start: 20190531

REACTIONS (2)
  - Retrobulbar oedema [Recovered/Resolved]
  - Vitreous floaters [Unknown]
